FAERS Safety Report 9972858 (Version 1)
Quarter: 2014Q1

REPORT INFORMATION
  Report Type: Spontaneous
  Country: US (occurrence: US)
  Receive Date: 20140306
  Receipt Date: 20140306
  Transmission Date: 20141002
  Serious: Yes (Death)
  Sender: FDA-Public Use
  Company Number: GXBR2014US000812

PATIENT
  Age: 35 Year
  Sex: Female
  Weight: 97 kg

DRUGS (4)
  1. ALPRAZOLAM TABLETS USP [Suspect]
     Dosage: UNK MG, UNK
  2. CHLORPROMAZINE HCL TABLETS USP [Suspect]
     Dosage: UNK MG, UNK
  3. DIPHENHYDRAMINE HCL CAPSULES USP [Suspect]
     Dosage: UNK MG, UNK
  4. FENTANYL [Suspect]
     Dosage: UNK DF, UNK

REACTIONS (2)
  - Toxicity to various agents [Fatal]
  - Drug abuse [Fatal]
